FAERS Safety Report 4839824-5 (Version None)
Quarter: 2005Q4

REPORT INFORMATION
  Report Type: 
  Country: None (occurrence: None)
  Receive Date: 20051125
  Receipt Date: 20051117
  Transmission Date: 20060501
  Serious: Yes (Hospitalization, Disabling)
  Sender: FDA-Public Use
  Company Number: 2005-02-0311

PATIENT
  Age: 61 Year
  Sex: Male
  Weight: 70 kg

DRUGS (10)
  1. PEG-INTRON [Suspect]
     Indication: HEPATITIS C
     Dosage: 100-50MCG QW* SUBCUTANEOUS
     Route: 058
     Dates: start: 20041213, end: 20050113
  2. PEG-INTRON [Suspect]
     Indication: HEPATITIS C
     Dosage: 100-50MCG QW* SUBCUTANEOUS
     Route: 058
     Dates: start: 20041213, end: 20050120
  3. PEG-INTRON [Suspect]
     Indication: HEPATITIS C
     Dosage: 100-50MCG QW* SUBCUTANEOUS
     Route: 058
     Dates: start: 20050120, end: 20050120
  4. REBETOL [Suspect]
     Indication: HEPATITIS C
     Dosage: 600-400 MG* ORAL
     Route: 048
     Dates: start: 20041126, end: 20050119
  5. REBETOL [Suspect]
     Indication: HEPATITIS C
     Dosage: 600-400 MG* ORAL
     Route: 048
     Dates: start: 20041126, end: 20050126
  6. REBETOL [Suspect]
     Indication: HEPATITIS C
     Dosage: 600-400 MG* ORAL
     Route: 048
     Dates: start: 20050120, end: 20050126
  7. INTRON A [Suspect]
     Indication: HEPATITIS C
     Dosage: 6 MIU QD INTRAMUSCULAR
     Route: 030
     Dates: start: 20041126, end: 20041211
  8. AMLODIPINE BESILATE TABLETS [Concomitant]
  9. BLOPRESS (CANDESARTAN CILEXETIL) [Concomitant]
  10. ZYRTEC [Concomitant]

REACTIONS (7)
  - DEHYDRATION [None]
  - GLOMERULONEPHRITIS PROLIFERATIVE [None]
  - HAEMATURIA [None]
  - MALAISE [None]
  - PROTEINURIA [None]
  - SEPSIS [None]
  - URINARY TRACT INFECTION [None]
